FAERS Safety Report 12255080 (Version 1)
Quarter: 2016Q2

REPORT INFORMATION
  Report Type: Report from Study
  Country: US (occurrence: US)
  Receive Date: 20160411
  Receipt Date: 20160411
  Transmission Date: 20160815
  Serious: No
  Sender: FDA-Public Use
  Company Number: PHEH2016US008253

PATIENT
  Sex: Male

DRUGS (1)
  1. COSENTYX [Suspect]
     Active Substance: SECUKINUMAB
     Indication: PSORIASIS
     Dosage: 300 MG, QMO
     Route: 058
     Dates: start: 20151217

REACTIONS (7)
  - Nasopharyngitis [Recovered/Resolved]
  - Psoriatic arthropathy [Unknown]
  - Musculoskeletal stiffness [Unknown]
  - Tinea cruris [Recovered/Resolved]
  - Psoriasis [Unknown]
  - Candida infection [Recovered/Resolved]
  - Dysgeusia [Not Recovered/Not Resolved]
